FAERS Safety Report 9014476 (Version 1)
Quarter: 2013Q1

REPORT INFORMATION
  Report Type: Spontaneous
  Country: FR (occurrence: FR)
  Receive Date: 20130115
  Receipt Date: 20130115
  Transmission Date: 20140127
  Serious: Yes (Hospitalization)
  Sender: FDA-Public Use
  Company Number: FR-GLAXOSMITHKLINE-B0856807A

PATIENT
  Age: 76 Year
  Sex: Male

DRUGS (8)
  1. ZELITREX [Suspect]
     Indication: PRODUCT USED FOR UNKNOWN INDICATION
     Dosage: 500MG TWICE PER DAY
     Route: 048
     Dates: start: 20120824, end: 20120906
  2. ALLOPURINOL [Suspect]
     Indication: PRODUCT USED FOR UNKNOWN INDICATION
     Dosage: 300MG PER DAY
     Route: 048
     Dates: start: 20120814, end: 20120906
  3. OXYNORM [Suspect]
     Indication: PRODUCT USED FOR UNKNOWN INDICATION
     Dosage: 10MG AS REQUIRED
     Route: 048
     Dates: start: 20120814, end: 20120911
  4. CONTRAMAL [Suspect]
     Indication: PRODUCT USED FOR UNKNOWN INDICATION
     Dosage: 100MG PER DAY
     Route: 048
     Dates: start: 20120814, end: 20120911
  5. VELCADE [Concomitant]
     Route: 042
     Dates: start: 20120814, end: 20120907
  6. ALKERAN [Concomitant]
     Route: 042
     Dates: start: 20120817, end: 20120907
  7. AMLOR [Concomitant]
     Dosage: 10MG PER DAY
     Route: 048
     Dates: start: 20120814, end: 20120911
  8. ESIDREX [Concomitant]
     Dosage: 25MG PER DAY
     Route: 048
     Dates: end: 20120911

REACTIONS (6)
  - Drug reaction with eosinophilia and systemic symptoms [Recovered/Resolved]
  - Rash pruritic [Recovered/Resolved]
  - Dermatitis exfoliative [Recovered/Resolved]
  - Face oedema [Recovered/Resolved]
  - Eosinophilia [Recovered/Resolved]
  - Skin exfoliation [Recovered/Resolved]
